FAERS Safety Report 8355966-4 (Version None)
Quarter: 2012Q2

REPORT INFORMATION
  Report Type: 
  Country: None (occurrence: None)
  Receive Date: 20120514
  Receipt Date: 20120507
  Transmission Date: 20120825
  Serious: Yes (Hospitalization)
  Sender: FDA-Public Use
  Company Number: US-BAYER-2012-045465

PATIENT
  Age: 51 Year
  Sex: Female

DRUGS (6)
  1. YAZ [Suspect]
     Indication: DYSMENORRHOEA
  2. LEVOTHYROXINE SODIUM [Concomitant]
     Dosage: 50 ?G, QD
  3. ALPRAZOLAM [Concomitant]
     Dosage: 1 MG [1/2 TABLET] THREE TIMES DAILY AS NEEDED
  4. CYTOMEL [Concomitant]
     Dosage: 10 MG, OM
  5. TETRACYCLINE [Concomitant]
     Dosage: 500 MG BID
  6. CYTOMEL [Concomitant]
     Dosage: 5 MG EVERY EVENING

REACTIONS (2)
  - DEEP VEIN THROMBOSIS [None]
  - PULMONARY EMBOLISM [None]
